FAERS Safety Report 6627809-8 (Version None)
Quarter: 2010Q1

REPORT INFORMATION
  Report Type: 
  Country: None (occurrence: None)
  Receive Date: 20100308
  Receipt Date: 20100224
  Transmission Date: 20100710
  Serious: Yes (Death, Hospitalization)
  Sender: FDA-Public Use
  Company Number: 2010SP012801

PATIENT
  Age: 60 Year
  Sex: Female
  Weight: 58.514 kg

DRUGS (6)
  1. NUVARING [Suspect]
     Indication: MICTURITION URGENCY
     Dosage: VAG
     Route: 067
     Dates: start: 20061024, end: 20070102
  2. NUVARING [Suspect]
     Indication: POLLAKIURIA
     Dosage: VAG
     Route: 067
     Dates: start: 20061024, end: 20070102
  3. LUNESTA [Concomitant]
  4. THYROID TAB [Concomitant]
  5. SYNTHROID [Concomitant]
  6. COMBIPATCH [Concomitant]

REACTIONS (22)
  - BLOOD ALBUMIN DECREASED [None]
  - BLOOD CALCIUM DECREASED [None]
  - BLOOD GLUCOSE INCREASED [None]
  - BLOOD POTASSIUM DECREASED [None]
  - BLOOD PRESSURE DECREASED [None]
  - BLOOD PRESSURE DIASTOLIC INCREASED [None]
  - CARDIO-RESPIRATORY ARREST [None]
  - CONFUSIONAL STATE [None]
  - DYSPNOEA [None]
  - ELECTROCARDIOGRAM ABNORMAL [None]
  - ELECTROCARDIOGRAM ST SEGMENT ABNORMAL [None]
  - HEART RATE INCREASED [None]
  - HYPOXIA [None]
  - MOUTH INJURY [None]
  - OESTRADIOL INCREASED [None]
  - PULMONARY EMBOLISM [None]
  - RESPIRATORY RATE INCREASED [None]
  - SINUS TACHYCARDIA [None]
  - SKIN LACERATION [None]
  - TROPONIN I INCREASED [None]
  - UNEVALUABLE EVENT [None]
  - VOMITING [None]
